FAERS Safety Report 6928824-7 (Version None)
Quarter: 2010Q3

REPORT INFORMATION
  Report Type: 
  Country: None (occurrence: None)
  Receive Date: 20100817
  Receipt Date: 20100813
  Transmission Date: 20110219
  Serious: Yes (Hospitalization)
  Sender: FDA-Public Use
  Company Number: US-BRISTOL-MYERS SQUIBB COMPANY-15239122

PATIENT
  Age: 64 Year
  Sex: Male

DRUGS (23)
  1. CARBOPLATIN [Suspect]
     Indication: NON-SMALL CELL LUNG CANCER
     Dosage: LAST DOSE ON 29JUL10(412MG)
     Dates: start: 20100624
  2. ABRAXANE [Suspect]
     Indication: NON-SMALL CELL LUNG CANCER
     Dosage: LAST DOSE ON 29JUL10(570MG)
     Dates: start: 20100624
  3. ASPIRIN [Concomitant]
  4. BENZONATATE [Concomitant]
     Indication: COUGH
  5. CALCIUM CITRATE [Concomitant]
  6. CELEBREX [Concomitant]
  7. CENTRUM [Concomitant]
  8. MULTI-VITAMIN [Concomitant]
  9. FOLIC ACID [Concomitant]
  10. FOSAMAX [Concomitant]
  11. LISINOPRIL [Concomitant]
  12. ISOSORBIDE MONONITRATE [Concomitant]
  13. MULTAQ [Concomitant]
  14. PLAVIX [Concomitant]
  15. PROCHLORPERAZINE [Concomitant]
     Indication: NAUSEA
  16. SIMVASTATIN [Concomitant]
  17. SPIRIVA [Concomitant]
  18. TRAMADOL [Concomitant]
  19. VITAMIN B-12 [Concomitant]
  20. VITAMIN B6 [Concomitant]
  21. ZOFRAN [Concomitant]
     Indication: NAUSEA
  22. ADVAIR DISKUS 100/50 [Concomitant]
  23. LORATADINE [Concomitant]

REACTIONS (2)
  - SEPSIS [None]
  - SHOCK [None]
